FAERS Safety Report 25825445 (Version 1)
Quarter: 2025Q3

REPORT INFORMATION
  Report Type: Report from Study
  Country: CA (occurrence: CA)
  Receive Date: 20250919
  Receipt Date: 20250919
  Transmission Date: 20251021
  Serious: Yes (Death)
  Sender: PFIZER
  Company Number: CA-PFIZER INC-202500184638

PATIENT
  Sex: Female

DRUGS (14)
  1. RITUXIMAB [Suspect]
     Active Substance: RITUXIMAB
     Indication: Polymyositis
     Route: 042
  2. RITUXIMAB [Suspect]
     Active Substance: RITUXIMAB
     Indication: Interstitial lung disease
  3. AMLODIPINE [Concomitant]
     Active Substance: AMLODIPINE BESYLATE
     Indication: Blood pressure measurement
  4. APIXABAN [Concomitant]
     Active Substance: APIXABAN
  5. AZATHIOPRINE [Concomitant]
     Active Substance: AZATHIOPRINE
  6. AZATHIOPRINE [Concomitant]
     Active Substance: AZATHIOPRINE
  7. CALCIUM [Concomitant]
     Active Substance: CALCIUM
  8. DAPSONE [Concomitant]
     Active Substance: DAPSONE
  9. METOPROLOL [Concomitant]
     Active Substance: METOPROLOL
  10. OXYCODONE [Concomitant]
     Active Substance: OXYCODONE
  11. RABEPRAZOLE SODIUM [Concomitant]
     Active Substance: RABEPRAZOLE SODIUM
  12. PREDNISONE [Concomitant]
     Active Substance: PREDNISONE
  13. PROLIA [Concomitant]
     Active Substance: DENOSUMAB
  14. CHOLECALCIFEROL [Concomitant]
     Active Substance: CHOLECALCIFEROL

REACTIONS (1)
  - Death [Fatal]
